FAERS Safety Report 23844827 (Version 1)
Quarter: 2024Q2

REPORT INFORMATION
  Report Type: Spontaneous
  Country: GH (occurrence: GH)
  Receive Date: 20240511
  Receipt Date: 20240511
  Transmission Date: 20240716
  Serious: Yes (Death)
  Sender: FDA-Public Use
  Company Number: GH-NOVITIUMPHARMA-2024GHNVP00762

PATIENT
  Age: 26 Year
  Sex: Male

DRUGS (8)
  1. BISOPROLOL FUMARATE [Suspect]
     Active Substance: BISOPROLOL FUMARATE
     Indication: Pulmonary hypertension
     Route: 048
  2. BISOPROLOL FUMARATE [Suspect]
     Active Substance: BISOPROLOL FUMARATE
     Route: 048
  3. DIGOXIN [Concomitant]
     Active Substance: DIGOXIN
     Indication: Cardiac failure
  4. LISINOPRIL [Concomitant]
     Active Substance: LISINOPRIL
     Indication: Pulmonary hypertension
     Route: 048
  5. FUROSEMIDE [Concomitant]
     Active Substance: FUROSEMIDE
     Route: 051
  6. EPLERENONE [Concomitant]
     Active Substance: EPLERENONE
     Indication: Pulmonary hypertension
     Route: 048
  7. TADALAFIL [Concomitant]
     Active Substance: TADALAFIL
     Indication: Pulmonary hypertension
     Route: 048
  8. WARFARIN [Concomitant]
     Active Substance: WARFARIN
     Indication: Pulmonary hypertension
     Route: 048

REACTIONS (1)
  - Drug ineffective [Fatal]
